FAERS Safety Report 8968147 (Version 4)
Quarter: 2013Q1

REPORT INFORMATION
  Report Type: Spontaneous
  Country: US (occurrence: US)
  Receive Date: 20121217
  Receipt Date: 20130308
  Transmission Date: 20140127
  Serious: No
  Sender: FDA-Public Use
  Company Number: US-VERTEX PHARMACEUTICALS INC.-2012-026168

PATIENT
  Age: 69 Year
  Sex: Male
  Weight: 104 kg

DRUGS (7)
  1. INCIVEK [Suspect]
     Indication: HEPATITIS C
     Dosage: 750 MG, TID
     Route: 048
     Dates: start: 20130123
  2. RIBAVIRIN [Suspect]
     Indication: HEPATITIS C
     Dosage: 600 MG, BID
     Route: 048
     Dates: start: 20121203
  3. RIBAVIRIN [Suspect]
     Dosage: 1 DF, QD
     Route: 048
  4. PEGASYS [Suspect]
     Indication: HEPATITIS C
     Dosage: 180 ?G, QW
     Route: 058
     Dates: start: 20121203
  5. AMLODIPINE BESYLATE [Concomitant]
     Dosage: 5 MG, QD
  6. ATENOLOL [Concomitant]
     Dosage: 100 MG, QD
  7. TERAZOSIN [Concomitant]
     Dosage: 1 MG, QD

REACTIONS (3)
  - Drug dose omission [Recovered/Resolved]
  - Rash pruritic [Unknown]
  - Pruritus [Not Recovered/Not Resolved]
